FAERS Safety Report 7287918-X (Version None)
Quarter: 2011Q1

REPORT INFORMATION
  Report Type: 
  Country: None (occurrence: None)
  Receive Date: 20110211
  Receipt Date: 20110204
  Transmission Date: 20110831
  Serious: No
  Sender: FDA-Public Use
  Company Number: US-PFIZER INC-2011026301

PATIENT
  Sex: Female
  Weight: 65.306 kg

DRUGS (5)
  1. HYDROCHLOROTHIAZIDE [Concomitant]
     Indication: HYPERTENSION
     Dosage: UNK
  2. PLAVIX [Concomitant]
     Dosage: UNK
  3. LISINOPRIL [Concomitant]
     Indication: HYPERTENSION
     Dosage: UNK
  4. BETHANECHOL [Concomitant]
     Indication: HYPERTONIC BLADDER
     Dosage: 25 MG, UNK
  5. LIPITOR [Suspect]
     Indication: PROPHYLAXIS
     Dosage: 20 MG, DAILY
     Route: 048
     Dates: start: 20110125

REACTIONS (3)
  - PAIN [None]
  - DIZZINESS [None]
  - SINUSITIS [None]
